FAERS Safety Report 7548207-9 (Version None)
Quarter: 2011Q2

REPORT INFORMATION
  Report Type: 
  Country: None (occurrence: None)
  Receive Date: 20110615
  Receipt Date: 20110523
  Transmission Date: 20111010
  Serious: Yes (Other)
  Sender: FDA-Public Use
  Company Number: US-BAYER-2010-002128

PATIENT
  Age: 32 Year
  Sex: Female
  Weight: 109 kg

DRUGS (12)
  1. METFORMIN HCL [Concomitant]
     Indication: DIABETES MELLITUS
     Dosage: UNK
     Dates: start: 20060101
  2. IBUPROFEN [Concomitant]
     Indication: HEADACHE
     Dosage: UNK UNK, PRN
  3. XANAX [Concomitant]
  4. SYNTHROID [Concomitant]
     Indication: PRODUCT USED FOR UNKNOWN INDICATION
     Dosage: UNK
     Dates: start: 20060101
  5. EXCEDRIN (MIGRAINE) [Concomitant]
     Dosage: UNK
     Dates: start: 20060101
  6. INHALERS [Concomitant]
     Dosage: UNK
     Dates: start: 19930101
  7. ALLEGRA [Concomitant]
  8. YAZ [Suspect]
     Indication: PREMENSTRUAL SYNDROME
     Dosage: UNK
     Route: 048
     Dates: start: 20050101, end: 20060101
  9. ZYRTEC [Concomitant]
     Indication: MULTIPLE ALLERGIES
     Dosage: UNK
     Dates: start: 19970101
  10. PREVACID [Concomitant]
     Indication: GASTROOESOPHAGEAL REFLUX DISEASE
     Dosage: UNK
     Dates: start: 20070101
  11. PAXIL [Concomitant]
  12. PROVENTIL [Concomitant]

REACTIONS (1)
  - GALLBLADDER DISORDER [None]
